FAERS Safety Report 20417122 (Version 2)
Quarter: 2022Q1

REPORT INFORMATION
  Report Type: Spontaneous
  Country: JP (occurrence: JP)
  Receive Date: 20220202
  Receipt Date: 20220211
  Transmission Date: 20220423
  Serious: Yes (Other)
  Sender: FDA-Public Use
  Company Number: JP-MSD-2201JPN000968J

PATIENT
  Age: 60 Year

DRUGS (1)
  1. KEYTRUDA [Suspect]
     Active Substance: PEMBROLIZUMAB
     Indication: Transitional cell carcinoma
     Dosage: 200 MILLIGRAM, Q3W
     Route: 041
     Dates: start: 20190320, end: 20190511

REACTIONS (1)
  - Immune-mediated neurological disorder [Recovered/Resolved]

NARRATIVE: CASE EVENT DATE: 20190501
